FAERS Safety Report 19788446 (Version 1)
Quarter: 2021Q3

REPORT INFORMATION
  Report Type: Spontaneous
  Country: US (occurrence: US)
  Receive Date: 20210903
  Receipt Date: 20210903
  Transmission Date: 20211014
  Serious: No
  Sender: FDA-Public Use
  Company Number: US-ASTRAZENECA-2021A698056

PATIENT
  Age: 73 Year
  Sex: Male
  Weight: 77.1 kg

DRUGS (1)
  1. BREZTRI AEROSPHERE [Suspect]
     Active Substance: BUDESONIDE\FORMOTEROL\GLYCOPYRRONIUM
     Indication: ASTHMA
     Dosage: ONE PUFF TWICE EACH DAY.
     Route: 055
     Dates: start: 2021

REACTIONS (5)
  - Device use issue [Recovered/Resolved]
  - Asthma [Recovered/Resolved]
  - Off label use [Not Recovered/Not Resolved]
  - Device malfunction [Unknown]
  - Drug dose omission by device [Recovered/Resolved]

NARRATIVE: CASE EVENT DATE: 2021
